FAERS Safety Report 6651853-8 (Version None)
Quarter: 2010Q1

REPORT INFORMATION
  Report Type: 
  Country: None (occurrence: None)
  Receive Date: 20100323
  Receipt Date: 20100308
  Transmission Date: 20100710
  Serious: Yes (Other)
  Sender: FDA-Public Use
  Company Number: 1000012330

PATIENT
  Age: 17 Year
  Sex: Male

DRUGS (3)
  1. CARBAMAZEPINE (CARBMAZEPINE) [Suspect]
  2. ZONISAMIDE [Suspect]
  3. AMOXICILLIN [Suspect]
     Dosage: ONCE

REACTIONS (3)
  - DRUG INEFFECTIVE [None]
  - DRUG RASH WITH EOSINOPHILIA AND SYSTEMIC SYMPTOMS [None]
  - TOXIC EPIDERMAL NECROLYSIS [None]
